FAERS Safety Report 24638630 (Version 3)
Quarter: 2024Q4

REPORT INFORMATION
  Report Type: Spontaneous
  Country: US (occurrence: US)
  Receive Date: 20241119
  Receipt Date: 20241224
  Transmission Date: 20250114
  Serious: No
  Sender: PFIZER
  Company Number: US-PFIZER INC-202400302870

PATIENT
  Age: 10 Year
  Sex: Male

DRUGS (1)
  1. NGENLA [Suspect]
     Active Substance: SOMATROGON-GHLA
     Dosage: 20 MG

REACTIONS (4)
  - Device delivery system issue [Unknown]
  - Incorrect dose administered by device [Unknown]
  - Crying [Unknown]
  - Mood altered [Unknown]
